FAERS Safety Report 10190570 (Version 2)
Quarter: 2014Q2

REPORT INFORMATION
  Report Type: Spontaneous
  Country: FR (occurrence: FR)
  Receive Date: 20140523
  Receipt Date: 20140617
  Transmission Date: 20141212
  Serious: Yes (Death, Other)
  Sender: FDA-Public Use
  Company Number: FR-ROCHE-1406460

PATIENT
  Sex: Female
  Weight: 60 kg

DRUGS (1)
  1. ZELBORAF [Suspect]
     Indication: METASTATIC MALIGNANT MELANOMA
     Dosage: 8 TABLETS
     Route: 065
     Dates: start: 20130828, end: 201401

REACTIONS (2)
  - Intraventricular haemorrhage [Fatal]
  - Gastrointestinal haemorrhage [Unknown]
